FAERS Safety Report 6557225-9 (Version None)
Quarter: 2010Q1

REPORT INFORMATION
  Report Type: 
  Country: None (occurrence: None)
  Receive Date: 20100127
  Receipt Date: 20100127
  Transmission Date: 20100710
  Serious: Yes (Other)
  Sender: FDA-Public Use
  Company Number: None

PATIENT
  Age: 45 Year
  Sex: Male
  Weight: 78.4723 kg

DRUGS (2)
  1. TOPIRAMATE [Suspect]
     Indication: BIPOLAR DISORDER
     Dosage: 25 MG 2 PO
     Route: 048
     Dates: start: 20100101, end: 20100126
  2. TOPIRAMATE [Suspect]
     Indication: MIGRAINE
     Dosage: 25 MG 2 PO
     Route: 048
     Dates: start: 20100101, end: 20100126

REACTIONS (5)
  - ABDOMINAL DISTENSION [None]
  - ALOPECIA [None]
  - DRUG INEFFECTIVE [None]
  - FLATULENCE [None]
  - PRODUCT SUBSTITUTION ISSUE [None]
